FAERS Safety Report 23110715 (Version 1)
Quarter: 2023Q4

REPORT INFORMATION
  Report Type: Spontaneous
  Country: US (occurrence: US)
  Receive Date: 20231026
  Receipt Date: 20231026
  Transmission Date: 20240110
  Serious: No
  Sender: FDA-Public Use
  Company Number: US-SA-SAC20231020001446

PATIENT
  Sex: Male
  Weight: 14.51 kg

DRUGS (1)
  1. DUPIXENT [Suspect]
     Active Substance: DUPILUMAB
     Indication: Illness
     Dosage: 200 MG, Q4W
     Route: 058

REACTIONS (4)
  - Hand-foot-and-mouth disease [Unknown]
  - Pruritus [Unknown]
  - Skin swelling [Unknown]
  - Scratch [Unknown]
